FAERS Safety Report 4278132-0 (Version None)
Quarter: 2004Q1

REPORT INFORMATION
  Report Type: 
  Country: None (occurrence: None)
  Receive Date: 20040123
  Receipt Date: 20040120
  Transmission Date: 20041129
  Serious: Yes (Other)
  Sender: FDA-Public Use
  Company Number: WAES 0401GBR00164

PATIENT
  Sex: Female

DRUGS (1)
  1. ARAMINE [Suspect]
     Route: 051
     Dates: start: 20040119, end: 20040119

REACTIONS (2)
  - MEDICATION ERROR [None]
  - NO ADVERSE EFFECT [None]
